FAERS Safety Report 5745510-X (Version None)
Quarter: 2008Q2

REPORT INFORMATION
  Report Type: 
  Country: None (occurrence: None)
  Receive Date: 20080521
  Receipt Date: 20080519
  Transmission Date: 20081010
  Serious: Yes (Life-Threatening)
  Sender: FDA-Public Use
  Company Number: TR-ASTRAZENECA-2008AC01273

PATIENT
  Age: 35 Year
  Sex: Female
  Weight: 75 kg

DRUGS (7)
  1. PROPOFOL [Suspect]
     Indication: GENERAL ANAESTHESIA
  2. PROPOFOL [Suspect]
  3. ROCURONIUM BROMIDE [Concomitant]
     Indication: GENERAL ANAESTHESIA
  4. ROCURONIUM BROMIDE [Concomitant]
  5. OXYGEN + NITROUS OXIDE [Concomitant]
     Indication: MAINTENANCE OF ANAESTHESIA
  6. SEVOFLURANE [Concomitant]
     Indication: MAINTENANCE OF ANAESTHESIA
     Dosage: 2 %
  7. FENTANYL CITRATE [Concomitant]

REACTIONS (1)
  - PULMONARY OEDEMA [None]
